FAERS Safety Report 25860392 (Version 1)
Quarter: 2025Q3

REPORT INFORMATION
  Report Type: Spontaneous
  Country: CN (occurrence: CN)
  Receive Date: 20250929
  Receipt Date: 20250929
  Transmission Date: 20251021
  Serious: Yes (Other)
  Sender: BAYER HEALTHCARE PHARMACEUTICALS INC.
  Company Number: CN-BAYER-2025A127900

PATIENT
  Age: 68 Year
  Sex: Male
  Weight: 55 kg

DRUGS (2)
  1. AVELOX [Suspect]
     Active Substance: MOXIFLOXACIN HYDROCHLORIDE
     Indication: Pneumonia bacterial
     Dosage: 0.4 G, QD
     Route: 041
     Dates: start: 20250918, end: 20250919
  2. DOXOFYLLINE [Concomitant]
     Active Substance: DOXOFYLLINE
     Indication: Bronchospasm
     Dosage: 0.2 G, QD
     Route: 041
     Dates: start: 20250918, end: 20250919

REACTIONS (13)
  - Extrapyramidal disorder [Recovering/Resolving]
  - Parkinsonism [Recovering/Resolving]
  - Gait disturbance [Not Recovered/Not Resolved]
  - Dysstasia [Recovered/Resolved]
  - Muscle twitching [Recovered/Resolved]
  - Reduced facial expression [None]
  - Musculoskeletal stiffness [None]
  - Speech disorder [Recovered/Resolved]
  - Bradykinesia [None]
  - Balance disorder [Recovering/Resolving]
  - Muscular weakness [None]
  - Vertigo [None]
  - Nystagmus [None]

NARRATIVE: CASE EVENT DATE: 20250919
